FAERS Safety Report 11869556 (Version 1)
Quarter: 2015Q4

REPORT INFORMATION
  Report Type: Spontaneous
  Country: US (occurrence: US)
  Receive Date: 20151228
  Receipt Date: 20151228
  Transmission Date: 20160305
  Serious: Yes (Other)
  Sender: FDA-Public Use
  Company Number: US-CIPLA LTD.-2015US09540

PATIENT

DRUGS (6)
  1. FLUVOXAMINE [Suspect]
     Active Substance: FLUVOXAMINE
     Dosage: UNK
     Route: 064
  2. CLOMIPRAMINE [Suspect]
     Active Substance: CLOMIPRAMINE
     Dosage: MOTHER TOOK FOR LAST 7 WEEKS OF PREGNANCY
     Route: 064
  3. TRIHEXYPHENIDYL [Suspect]
     Active Substance: TRIHEXYPHENIDYL
     Dosage: MOTHER TOOK 1 DAY BEFORE DELIVERY
     Route: 064
  4. VALPROIC ACID. [Suspect]
     Active Substance: VALPROIC ACID
     Dosage: UNK
     Route: 064
  5. RISPERIDONE. [Suspect]
     Active Substance: RISPERIDONE
     Dosage: MOTHER TOOK 2MG, ONE DAY BEFORE DELIVERY OF TWINS
     Route: 064
  6. PHENOBARBITAL. [Suspect]
     Active Substance: PHENOBARBITAL
     Dosage: UNK
     Route: 064

REACTIONS (6)
  - Premature baby [Unknown]
  - Tachypnoea [Unknown]
  - Seizure [Recovered/Resolved]
  - Hyperbilirubinaemia [Unknown]
  - Foetal exposure during pregnancy [Unknown]
  - Apnoeic attack [Recovered/Resolved]
